FAERS Safety Report 8427838-8 (Version None)
Quarter: 2012Q2

REPORT INFORMATION
  Report Type: 
  Country: None (occurrence: None)
  Receive Date: 20120611
  Receipt Date: 20120604
  Transmission Date: 20120825
  Serious: Yes (Death, Other)
  Sender: FDA-Public Use
  Company Number: PT-GILEAD-2012-0050515

PATIENT
  Sex: Male

DRUGS (3)
  1. VIREAD [Suspect]
     Indication: HEPATITIS B
     Dosage: UNK
  2. LAMIVUDINE (EPIVIR HBV) [Concomitant]
  3. VIREAD [Suspect]
     Dosage: 1 DF, QOD

REACTIONS (2)
  - RESPIRATORY FAILURE [None]
  - FANCONI SYNDROME [None]
